FAERS Safety Report 17032111 (Version 1)
Quarter: 2019Q4

REPORT INFORMATION
  Report Type: Spontaneous
  Country: US (occurrence: US)
  Receive Date: 20191114
  Receipt Date: 20191114
  Transmission Date: 20200122
  Serious: Yes (Other)
  Sender: FDA-Public Use
  Company Number: US-ASTRAZENECA-2019SF60042

PATIENT
  Age: 23879 Day
  Sex: Female
  Weight: 77.1 kg

DRUGS (8)
  1. MINERALS [Concomitant]
     Active Substance: MINERALS
     Indication: MINERAL SUPPLEMENTATION
     Route: 048
  2. METFORMIN [Concomitant]
     Active Substance: METFORMIN HYDROCHLORIDE
     Indication: DIABETES MELLITUS
     Route: 048
     Dates: end: 2018
  3. METFORMIN [Concomitant]
     Active Substance: METFORMIN HYDROCHLORIDE
     Indication: DIABETES MELLITUS
     Route: 048
     Dates: start: 2018
  4. MULTIVITAMIN [Concomitant]
     Active Substance: VITAMINS
     Indication: VITAMIN SUPPLEMENTATION
     Route: 048
  5. BYDUREON [Suspect]
     Active Substance: EXENATIDE
     Indication: TYPE 2 DIABETES MELLITUS
     Dosage: 2 MG ONCE A WEEK STARTING 1 YEAR OR 2 YEARS AFTER 2013
     Route: 058
     Dates: end: 2018
  6. BYDUREON BCISE [Suspect]
     Active Substance: EXENATIDE
     Indication: TYPE 2 DIABETES MELLITUS
     Route: 058
     Dates: start: 2018
  7. LISINOPRIL. [Concomitant]
     Active Substance: LISINOPRIL
     Indication: DIABETES MELLITUS
     Route: 048
     Dates: start: 2013
  8. OZURDEX [Concomitant]
     Active Substance: DEXAMETHASONE
     Indication: DIABETIC RETINOPATHY

REACTIONS (12)
  - Feeling abnormal [Unknown]
  - Diabetic retinopathy [Not Recovered/Not Resolved]
  - Body height decreased [Not Recovered/Not Resolved]
  - Blindness transient [Recovering/Resolving]
  - Ligament sprain [Unknown]
  - Eye pain [Unknown]
  - Fall [Unknown]
  - Diabetes mellitus inadequate control [Recovered/Resolved]
  - Blood glucose increased [Unknown]
  - Head injury [Unknown]
  - Wound [Unknown]
  - Vascular injury [Recovered/Resolved]

NARRATIVE: CASE EVENT DATE: 20190917
